FAERS Safety Report 5123882-7 (Version None)
Quarter: 2006Q4

REPORT INFORMATION
  Report Type: 
  Country: None (occurrence: None)
  Receive Date: 20061010
  Receipt Date: 20061005
  Transmission Date: 20070319
  Serious: Yes (Other)
  Sender: FDA-Public Use
  Company Number: DE-GLAXOSMITHKLINE-D0051068A

PATIENT
  Age: 20 Year
  Sex: Female
  Weight: 65 kg

DRUGS (5)
  1. SEROXAT [Suspect]
     Dosage: 400MG SINGLE DOSE
     Route: 048
  2. APONAL [Suspect]
     Dosage: 500MG SINGLE DOSE
     Route: 048
  3. IMBUN [Suspect]
     Dosage: 3500MG SINGLE DOSE
     Route: 048
  4. RISPERDAL [Suspect]
     Dosage: 4MG SINGLE DOSE
     Route: 048
  5. VENLAFAXINE HCL [Suspect]
     Dosage: 750MG SINGLE DOSE
     Route: 048

REACTIONS (5)
  - INTENTIONAL OVERDOSE [None]
  - MULTIPLE DRUG OVERDOSE INTENTIONAL [None]
  - SOMNOLENCE [None]
  - SUICIDE ATTEMPT [None]
  - TACHYCARDIA [None]
